FAERS Safety Report 8779711 (Version 1)
Quarter: 2012Q4

REPORT INFORMATION
  Report Type: 
  Country: US (occurrence: US)
  Receive Date: 20120912
  Receipt Date: 20120912
  Transmission Date: 20130627
  Serious: No
  Sender: FDA-Public Use
  Company Number: US-TEVA-342298USA

PATIENT
  Age: 64 Year
  Sex: Female

DRUGS (1)
  1. QNASL [Suspect]
     Indication: NASAL CONGESTION
     Dosage: 320 mcg
     Dates: start: 20120606, end: 20120608

REACTIONS (1)
  - Nasal discomfort [Recovered/Resolved]
